FAERS Safety Report 20863258 (Version 1)
Quarter: 2022Q2

REPORT INFORMATION
  Report Type: Spontaneous
  Country: IE (occurrence: IE)
  Receive Date: 20220523
  Receipt Date: 20220523
  Transmission Date: 20220721
  Serious: Yes (Other)
  Sender: FDA-Public Use
  Company Number: IE-NOVARTISPH-NVSC2022IE117782

PATIENT
  Sex: Male

DRUGS (1)
  1. TAMSULOSIN [Suspect]
     Active Substance: TAMSULOSIN
     Indication: Product used for unknown indication
     Dosage: UNK
     Route: 065

REACTIONS (1)
  - Erectile dysfunction [Unknown]
